FAERS Safety Report 4757287-5 (Version None)
Quarter: 2005Q3

REPORT INFORMATION
  Report Type: 
  Country: None (occurrence: None)
  Receive Date: 20050831
  Receipt Date: 20050826
  Transmission Date: 20060218
  Serious: Yes (Other)
  Sender: FDA-Public Use
  Company Number: PHNU2005DE02973

PATIENT
  Sex: Male

DRUGS (2)
  1. AVELOX [Suspect]
     Route: 065
     Dates: start: 20050801
  2. SANDOSTATIN [Suspect]
     Indication: PROPHYLAXIS
     Dosage: 100 UG, TID
     Route: 065
     Dates: start: 20050801

REACTIONS (2)
  - AMMONIA INCREASED [None]
  - BRAIN OEDEMA [None]
